FAERS Safety Report 8142214-3 (Version None)
Quarter: 2012Q1

REPORT INFORMATION
  Report Type: 
  Country: None (occurrence: None)
  Receive Date: 20120216
  Receipt Date: 20120206
  Transmission Date: 20120608
  Serious: Yes (Other)
  Sender: FDA-Public Use
  Company Number: PHHY2012NL011085

PATIENT
  Age: 59 Year
  Sex: Male

DRUGS (7)
  1. MYCOPHENOLIC ACID [Suspect]
     Indication: PEMPHIGUS
     Dosage: 1440 MG, UNK
  2. PREDNISOLONE [Suspect]
     Dosage: 0.75 MG, UNK
  3. AZATHIOPRINE [Suspect]
     Indication: PEMPHIGUS
     Dosage: 3 MG/KG, UNK
  4. CYCLOPHOSPHAMIDE [Suspect]
     Indication: PEMPHIGUS
  5. IMMUNE GLOBULIN INTRAVENOUS (HUMAN) [Suspect]
     Indication: PEMPHIGUS
     Route: 042
  6. PREDNISOLONE [Suspect]
     Indication: PEMPHIGUS
     Dosage: 0.5 MG/KG, UNK
  7. MYCOPHENOLATE MOFETIL [Suspect]
     Indication: PEMPHIGUS
     Dosage: 1500 MG, UNK

REACTIONS (6)
  - PLEURISY [None]
  - URTICARIA [None]
  - DRUG RESISTANCE [None]
  - SKIN LESION [None]
  - LIVER FUNCTION TEST ABNORMAL [None]
  - HEPATITIS E [None]
